FAERS Safety Report 15116513 (Version 2)
Quarter: 2018Q3

REPORT INFORMATION
  Report Type: Spontaneous
  Country: KR (occurrence: KR)
  Receive Date: 20180706
  Receipt Date: 20180903
  Transmission Date: 20181010
  Serious: Yes (Hospitalization)
  Sender: FDA-Public Use
  Company Number: KR-009507513-1807KOR000985

PATIENT
  Sex: Male

DRUGS (23)
  1. KEYTRUDA [Suspect]
     Active Substance: PEMBROLIZUMAB
     Dosage: UNK
     Dates: start: 20180514
  2. ABSTRAL [Concomitant]
     Active Substance: FENTANYL CITRATE
     Dosage: 3 TABS, FOR 21 DAYS
     Route: 048
     Dates: start: 20180717
  3. LYRICA [Concomitant]
     Active Substance: PREGABALIN
     Dosage: 2 CAPS, FOR 21 DAYS
     Route: 048
     Dates: start: 20180717
  4. SODIUM CHLORIDE. [Concomitant]
     Active Substance: SODIUM CHLORIDE
     Dosage: 2 DF, FOR 1 DAY
     Dates: start: 20180817
  5. SODIUM CHLORIDE. [Concomitant]
     Active Substance: SODIUM CHLORIDE
     Dosage: 2 DF, FOR 1 DAY
     Dates: start: 20180817
  6. DUROGESIC [Concomitant]
     Active Substance: FENTANYL
     Dosage: 10 DF, FOR 1 DAY
     Route: 062
     Dates: start: 20180817
  7. SODIUM CHLORIDE. [Concomitant]
     Active Substance: SODIUM CHLORIDE
     Dosage: 1 DF, FOR 1 DAY
     Dates: start: 20180717
  8. SUPRAX [Concomitant]
     Active Substance: CEFIXIME
     Dosage: 4 CAPS, FOR 7 DAYS
     Route: 048
     Dates: start: 20180817
  9. KEYTRUDA [Suspect]
     Active Substance: PEMBROLIZUMAB
     Dosage: UNK
     Dates: start: 20180717
  10. KEYTRUDA [Suspect]
     Active Substance: PEMBROLIZUMAB
     Dosage: UNK
     Dates: start: 20180817
  11. KEYTRUDA [Suspect]
     Active Substance: PEMBROLIZUMAB
     Dosage: UNK
     Dates: start: 20180625
  12. ABSTRAL [Concomitant]
     Active Substance: FENTANYL CITRATE
     Dosage: 4 TABS, FOR 21 DAYS
     Route: 048
     Dates: start: 20180817
  13. KEYTRUDA [Suspect]
     Active Substance: PEMBROLIZUMAB
     Dosage: UNK
     Dates: start: 20180424
  14. MACPERAN [Concomitant]
     Active Substance: METOCLOPRAMIDE HYDROCHLORIDE
     Dosage: 6 TABS, FOR 5 DAYS
     Route: 048
     Dates: start: 20180717
  15. SUPRAX [Concomitant]
     Active Substance: CEFIXIME
     Dosage: 4 CAPS, FOR 7 DAYS
     Route: 048
     Dates: start: 20180717
  16. LEXAPRO [Concomitant]
     Active Substance: ESCITALOPRAM OXALATE
     Dosage: 1 TAB, FOR 21 DAYS
     Route: 048
     Dates: start: 20180717
  17. LEXAPRO [Concomitant]
     Active Substance: ESCITALOPRAM OXALATE
     Dosage: 1 TAB, FOR 21 DAYS
     Route: 048
     Dates: start: 20180817
  18. DUROGESIC [Concomitant]
     Active Substance: FENTANYL
     Dosage: 2 DF, FOR 10 DAYS
     Dates: start: 20180717
  19. KEYTRUDA [Suspect]
     Active Substance: PEMBROLIZUMAB
     Indication: RECTAL CANCER
     Dosage: UNK
     Dates: start: 20180402
  20. KEYTRUDA [Suspect]
     Active Substance: PEMBROLIZUMAB
     Dosage: UNK
     Dates: start: 20180604
  21. ATIVAN [Concomitant]
     Active Substance: LORAZEPAM
     Dosage: 1 DF, FOR 21 DAYS
     Dates: start: 20180717
  22. DUROGESIC [Concomitant]
     Active Substance: FENTANYL
     Dosage: 10 DF, FOR 1 DAY
     Route: 062
     Dates: start: 20180817
  23. SODIUM CHLORIDE. [Concomitant]
     Active Substance: SODIUM CHLORIDE
     Dosage: 1 DF, FOR 1 DAY
     Dates: start: 20180717

REACTIONS (2)
  - Calculus urinary [Unknown]
  - Product use in unapproved indication [Unknown]

NARRATIVE: CASE EVENT DATE: 20180402
